FAERS Safety Report 17431000 (Version 3)
Quarter: 2020Q3

REPORT INFORMATION
  Report Type: Spontaneous
  Country: JP (occurrence: JP)
  Receive Date: 20200218
  Receipt Date: 20200825
  Transmission Date: 20201102
  Serious: Yes (Death, Other)
  Sender: FDA-Public Use
  Company Number: JP-ASTRAZENECA-2020SE24037

PATIENT
  Age: 78 Year
  Sex: Male
  Weight: 58 kg

DRUGS (7)
  1. DAIPHEN [Concomitant]
     Active Substance: SULFAMETHOXAZOLE\TRIMETHOPRIM
     Dosage: DOSE UNKNOWN
     Route: 048
     Dates: end: 20200201
  2. VALSARTAN. [Concomitant]
     Active Substance: VALSARTAN
     Route: 048
     Dates: end: 20200201
  3. ARGAMATE [Concomitant]
     Active Substance: CALCIUM POLYSTYRENE SULFONATE
     Route: 048
     Dates: end: 20200201
  4. IMFINZI [Suspect]
     Active Substance: DURVALUMAB
     Indication: NON-SMALL CELL LUNG CANCER
     Route: 042
     Dates: start: 20191113, end: 20191127
  5. ATORVASTATIN [Concomitant]
     Active Substance: ATORVASTATIN
     Route: 048
     Dates: end: 20200201
  6. THYRADIN?S [Concomitant]
     Active Substance: LEVOTHYROXINE
     Route: 048
     Dates: end: 20200201
  7. AMLODIPINE [Concomitant]
     Active Substance: AMLODIPINE BESYLATE
     Route: 048
     Dates: end: 20200201

REACTIONS (6)
  - Cardiovascular disorder [Fatal]
  - Vomiting [Unknown]
  - Pneumonia [Fatal]
  - Pneumonitis [Recovering/Resolving]
  - Autoimmune thyroiditis [Unknown]
  - Hypothyroidism [Unknown]

NARRATIVE: CASE EVENT DATE: 20191211
